FAERS Safety Report 18517582 (Version 2)
Quarter: 2020Q4

REPORT INFORMATION
  Report Type: Spontaneous
  Country: US (occurrence: US)
  Receive Date: 20201118
  Receipt Date: 20201228
  Transmission Date: 20210114
  Serious: No
  Sender: FDA-Public Use
  Company Number: US-BAYER-2020-250042

PATIENT
  Sex: Female

DRUGS (2)
  1. ALEVE PM [Suspect]
     Active Substance: DIPHENHYDRAMINE HYDROCHLORIDE\NAPROXEN SODIUM
     Indication: PRODUCT USED FOR UNKNOWN INDICATION
     Route: 065
  2. TYMLOS [Concomitant]
     Active Substance: ABALOPARATIDE
     Indication: OSTEOPOROSIS
     Dosage: 80 MG, QD
     Route: 065

REACTIONS (1)
  - Drug hypersensitivity [Not Recovered/Not Resolved]

NARRATIVE: CASE EVENT DATE: 2020
